FAERS Safety Report 8454811-6 (Version None)
Quarter: 2012Q2

REPORT INFORMATION
  Report Type: 
  Country: None (occurrence: None)
  Receive Date: 20120621
  Receipt Date: 20120611
  Transmission Date: 20120825
  Serious: Yes (Other)
  Sender: FDA-Public Use
  Company Number: GB-JNJFOC-20120609196

PATIENT
  Age: 44 Year
  Sex: Female

DRUGS (2)
  1. TAPENTADOL HYDROCHLORIDE [Suspect]
     Indication: PAIN
     Route: 048
     Dates: start: 20110801
  2. TAPENTADOL HYDROCHLORIDE [Suspect]
     Route: 048
     Dates: start: 20110801

REACTIONS (1)
  - BLOOD PRESSURE INCREASED [None]
